FAERS Safety Report 10165916 (Version 1)
Quarter: 2014Q2

REPORT INFORMATION
  Report Type: Spontaneous
  Country: US (occurrence: US)
  Receive Date: 20140510
  Receipt Date: 20140510
  Transmission Date: 20141212
  Serious: No
  Sender: FDA-Public Use
  Company Number: US-BRISTOL-MYERS SQUIBB COMPANY-19968684

PATIENT
  Age: 67 Year
  Sex: Female
  Weight: 85.26 kg

DRUGS (4)
  1. BYDUREON [Suspect]
     Indication: TYPE 2 DIABETES MELLITUS
     Route: 058
     Dates: start: 2013
  2. LEVEMIR [Concomitant]
  3. GLIMEPIRIDE [Concomitant]
  4. METFORMIN [Concomitant]

REACTIONS (5)
  - Injection site haemorrhage [Recovered/Resolved]
  - Injection site pain [Unknown]
  - Injection site nodule [Recovered/Resolved]
  - Injection site discolouration [Unknown]
  - Nausea [Unknown]
